FAERS Safety Report 4471577-5 (Version None)
Quarter: 2004Q4

REPORT INFORMATION
  Report Type: 
  Country: None (occurrence: None)
  Receive Date: 20041012
  Receipt Date: 20020215
  Transmission Date: 20050328
  Serious: Yes (Hospitalization)
  Sender: FDA-Public Use
  Company Number: JP-GLAXOSMITHKLINE-B0260076A

PATIENT
  Age: 70 Year
  Sex: Male
  Weight: 42.5 kg

DRUGS (13)
  1. VALTREX [Suspect]
     Indication: HERPES ZOSTER
     Route: 048
     Dates: start: 20020131, end: 20020202
  2. MADOPAR [Concomitant]
     Dosage: 1TAB PER DAY
     Route: 048
  3. ADALAT [Concomitant]
     Indication: HYPERTENSION
     Dosage: 1TAB PER DAY
     Route: 048
  4. BLOPRESS [Concomitant]
     Indication: HYPERTENSION
     Dosage: .5TAB PER DAY
     Route: 048
     Dates: end: 20020202
  5. HALCION [Concomitant]
     Indication: INSOMNIA
     Dosage: 1TAB PER DAY
     Route: 048
  6. PURSENNID [Concomitant]
     Indication: CONSTIPATION
     Dosage: 3TABS PER DAY
     Route: 048
     Dates: end: 20020202
  7. ZANTAC [Concomitant]
     Indication: GASTRITIS
     Dosage: 1TAB PER DAY
     Route: 048
     Dates: end: 20020202
  8. EBASTEL [Concomitant]
     Dosage: 1TAB TWICE PER DAY
     Route: 048
     Dates: end: 20020202
  9. SELBEX [Concomitant]
     Indication: GASTRITIS
     Dosage: 1CAP THREE TIMES PER DAY
     Route: 048
     Dates: start: 20011221, end: 20020202
  10. MOSAPRIDE CITRATE [Concomitant]
     Dosage: 1TAB THREE TIMES PER DAY
     Route: 048
     Dates: end: 20020202
  11. PRECIPITATED CALCIUM CARBONATE [Concomitant]
     Dosage: 1TAB THREE TIMES PER DAY
     Route: 048
     Dates: end: 20020202
  12. PARLODEL [Concomitant]
     Dosage: 2TAB TWICE PER DAY
     Route: 048
  13. HUMULIN N [Concomitant]
     Indication: DIABETES MELLITUS
     Dosage: 8UNIT PER DAY
     Route: 065

REACTIONS (9)
  - ABNORMAL BEHAVIOUR [None]
  - ACTIVITIES OF DAILY LIVING IMPAIRED [None]
  - AFFECT LABILITY [None]
  - DELIRIUM [None]
  - DEPRESSED LEVEL OF CONSCIOUSNESS [None]
  - DISORIENTATION [None]
  - REFLUX OESOPHAGITIS [None]
  - SPEECH DISORDER [None]
  - VOMITING [None]
